FAERS Safety Report 5221581-4 (Version None)
Quarter: 2007Q1

REPORT INFORMATION
  Report Type: 
  Country: None (occurrence: None)
  Receive Date: 20070127
  Receipt Date: 20070123
  Transmission Date: 20070707
  Serious: Yes (Life-Threatening, Hospitalization)
  Sender: FDA-Public Use
  Company Number: BR-ABBOTT-06P-020-0346673-00

PATIENT
  Sex: Male

DRUGS (11)
  1. RITONAVIR SOFT GELATIN CAPSULES [Suspect]
     Indication: HIV INFECTION
     Route: 048
     Dates: start: 20060817
  2. TMC125 (BLINDED) [Concomitant]
     Indication: HIV INFECTION
     Dosage: 2 DOSES
     Route: 048
     Dates: start: 20060817
  3. TMC114 (DARUNAVIR) [Concomitant]
     Indication: HIV INFECTION
     Route: 048
     Dates: start: 20060817
  4. ZIDOVUDINE W/LAMIVUDINE [Concomitant]
     Indication: HIV INFECTION
     Route: 048
     Dates: start: 20060301
  5. FUZEON [Concomitant]
     Indication: HIV INFECTION
     Route: 058
     Dates: start: 20060817
  6. REYATAZ [Concomitant]
     Indication: HIV INFECTION
     Route: 048
     Dates: start: 20060301
  7. BACTRIM [Concomitant]
     Indication: PNEUMOCYSTIS JIROVECI PNEUMONIA
     Route: 048
  8. AZITHROMYCIN [Concomitant]
     Indication: PROPHYLAXIS
     Route: 048
  9. AMITRIPTYLINE HCL [Concomitant]
     Indication: POST HERPETIC NEURALGIA
     Route: 048
     Dates: start: 20060814
  10. AMITRIPTYLINE HCL [Concomitant]
     Dates: start: 20061013
  11. ACETAMINOPHEN W/ CODEINE [Concomitant]
     Indication: POST HERPETIC NEURALGIA
     Route: 048

REACTIONS (1)
  - IMMUNE RECONSTITUTION SYNDROME [None]
